FAERS Safety Report 7783140-9 (Version None)
Quarter: 2011Q3

REPORT INFORMATION
  Report Type: 
  Country: None (occurrence: None)
  Receive Date: 20110928
  Receipt Date: 20110915
  Transmission Date: 20111222
  Serious: Yes (Hospitalization)
  Sender: FDA-Public Use
  Company Number: PHHY2011BR82430

PATIENT
  Sex: Female

DRUGS (2)
  1. ENABLEX [Concomitant]
     Indication: HYPERTONIC BLADDER
     Dosage: 1 DF, PER DAY
     Route: 048
  2. DIOVAN [Suspect]
     Indication: HYPERTENSION
     Dosage: 320 MG PER DAY
     Route: 048
     Dates: start: 20101001

REACTIONS (4)
  - URINARY TRACT INFECTION [None]
  - NAUSEA [None]
  - DYSPNOEA [None]
  - TACHYCARDIA [None]
